FAERS Safety Report 16027504 (Version 1)
Quarter: 2019Q1

REPORT INFORMATION
  Report Type: Spontaneous
  Country: US (occurrence: US)
  Receive Date: 20190304
  Receipt Date: 20190304
  Transmission Date: 20190418
  Serious: Yes (Other)
  Sender: FDA-Public Use
  Company Number: US-TEVA-2019-US-1018605

PATIENT
  Age: 56 Year
  Sex: Female

DRUGS (2)
  1. AUSTEDO [Suspect]
     Active Substance: DEUTETRABENAZINE
     Dosage: 24 MILLIGRAM DAILY;
     Route: 048
     Dates: start: 201810
  2. AUSTEDO [Suspect]
     Active Substance: DEUTETRABENAZINE
     Dosage: 48 MILLIGRAM DAILY;
     Route: 048

REACTIONS (9)
  - Heart rate increased [Unknown]
  - Hyperhidrosis [Unknown]
  - Depression [Unknown]
  - Musculoskeletal stiffness [Unknown]
  - Sinusitis [Unknown]
  - Insomnia [Unknown]
  - Restlessness [Unknown]
  - Suicidal ideation [Unknown]
  - Thinking abnormal [Unknown]

NARRATIVE: CASE EVENT DATE: 201811
